FAERS Safety Report 9115709 (Version 1)
Quarter: 2013Q1

REPORT INFORMATION
  Report Type: Spontaneous
  Country: CL (occurrence: None)
  Receive Date: 20130129
  Receipt Date: 20130129
  Transmission Date: 20140127
  Serious: Yes (Death)
  Sender: FDA-Public Use
  Company Number: FK201300201

PATIENT
  Sex: 0

DRUGS (1)
  1. BLEOMYCIN SULFATE [Suspect]
     Indication: PRODUCT USED FOR UNKNOWN INDICATION

REACTIONS (4)
  - Acute interstitial pneumonitis [None]
  - Idiopathic pulmonary fibrosis [None]
  - Respiratory failure [None]
  - No therapeutic response [None]
